FAERS Safety Report 5977601-2 (Version None)
Quarter: 2008Q4

REPORT INFORMATION
  Report Type: 
  Country: None (occurrence: None)
  Receive Date: 20081203
  Receipt Date: 20081128
  Transmission Date: 20090506
  Serious: Yes (Life-Threatening, Hospitalization)
  Sender: FDA-Public Use
  Company Number: PHHO2008LV14232

PATIENT
  Sex: Female
  Weight: 82 kg

DRUGS (4)
  1. FORADIL / FOR 258A / CGP 25827 [Suspect]
     Indication: ASTHMA
     Dosage: UNK
     Dates: start: 20081105, end: 20081107
  2. FLIXOTIDE ^ALLEN + HANBURYS^ [Suspect]
     Indication: ASTHMA
  3. ASPIRIN [Concomitant]
  4. INSTENON [Concomitant]

REACTIONS (2)
  - CEREBRAL HAEMORRHAGE [None]
  - MUSCULAR WEAKNESS [None]
